FAERS Safety Report 8845849 (Version 2)
Quarter: 2015Q3

REPORT INFORMATION
  Report Type: Report from Study
  Country: US (occurrence: US)
  Receive Date: 20121017
  Receipt Date: 20150820
  Transmission Date: 20151125
  Serious: Yes (Other)
  Sender: FDA-Public Use
  Company Number: US-ROCHE-1144592

PATIENT
  Sex: Female

DRUGS (10)
  1. GLUCOPHAGE XR [Concomitant]
     Active Substance: METFORMIN HYDROCHLORIDE
     Route: 065
  2. NUTROPIN [Suspect]
     Active Substance: SOMATROPIN
     Indication: HYPOTHYROIDISM
     Dosage: 0.06 CC
     Route: 058
  3. PRINIVIL [Concomitant]
     Active Substance: LISINOPRIL
     Route: 065
  4. SYNTHROID [Concomitant]
     Active Substance: LEVOTHYROXINE SODIUM
     Route: 065
  5. SPIRONOLACTONE. [Concomitant]
     Active Substance: SPIRONOLACTONE
     Route: 048
  6. NUTROPIN [Suspect]
     Active Substance: SOMATROPIN
     Indication: GROWTH HORMONE DEFICIENCY
     Dosage: 0.66 CC
     Route: 058
  7. PRILOSEC [Concomitant]
     Active Substance: OMEPRAZOLE MAGNESIUM
     Route: 065
  8. NUTROPIN [Suspect]
     Active Substance: SOMATROPIN
     Indication: HYPOPITUITARISM
     Dosage: 0.08 CC
     Route: 058
  9. TRI-EST [Concomitant]
     Dosage: 1.5/P-250/T-0.25 ONE HALF TROCHE
     Route: 065
  10. BENTYL [Concomitant]
     Active Substance: DICYCLOMINE HYDROCHLORIDE
     Dosage: PRN
     Route: 048

REACTIONS (8)
  - Appendicitis noninfective [Unknown]
  - Change of bowel habit [Unknown]
  - Adhesion [Unknown]
  - Polyp [Unknown]
  - Pain [Unknown]
  - Abdominal pain lower [Unknown]
  - Umbilical hernia [Unknown]
  - Gastrooesophageal reflux disease [Unknown]
